FAERS Safety Report 4990545-8 (Version None)
Quarter: 2006Q2

REPORT INFORMATION
  Report Type: 
  Country: None (occurrence: None)
  Receive Date: 20060503
  Receipt Date: 20060428
  Transmission Date: 20061013
  Serious: Yes (Death, Life-Threatening, Hospitalization)
  Sender: FDA-Public Use
  Company Number: US-JNJFOC-20060403117

PATIENT
  Sex: Female
  Weight: 52.8 kg

DRUGS (19)
  1. DOXIL [Suspect]
     Indication: T-CELL LYMPHOMA
     Route: 042
  2. CYCLOPHOSPHAMIDE [Suspect]
     Indication: T-CELL LYMPHOMA
     Route: 042
  3. MESNA [Suspect]
     Indication: T-CELL LYMPHOMA
     Route: 042
  4. VINCRISTINE [Suspect]
     Indication: T-CELL LYMPHOMA
     Route: 042
  5. DECADRON [Suspect]
     Indication: T-CELL LYMPHOMA
     Route: 048
  6. METHOTREXATE [Suspect]
     Indication: T-CELL LYMPHOMA
     Route: 042
  7. ARA-C [Suspect]
     Indication: T-CELL LYMPHOMA
     Route: 042
  8. LEUKOVORIN [Suspect]
     Indication: T-CELL LYMPHOMA
     Route: 048
  9. NEUPOGEN [Concomitant]
     Indication: T-CELL LYMPHOMA
     Route: 058
  10. PROTONIX [Concomitant]
  11. ACYCLOVIR [Concomitant]
  12. LOTREL [Concomitant]
  13. LOTREL [Concomitant]
  14. AMBIEN [Concomitant]
  15. COMPAZINE [Concomitant]
  16. DARVON [Concomitant]
  17. VALTREX [Concomitant]
  18. ZOFRAN [Concomitant]
     Route: 042
  19. SODIUM ACETATE [Concomitant]
     Route: 042

REACTIONS (20)
  - ACUTE RESPIRATORY FAILURE [None]
  - ATRIAL FIBRILLATION [None]
  - ATRIAL TACHYCARDIA [None]
  - BLOOD ELECTROLYTES ABNORMAL [None]
  - BLOOD SODIUM DECREASED [None]
  - CYTOMEGALOVIRUS ANTIGEN POSITIVE [None]
  - DILATATION ATRIAL [None]
  - HAEMOGLOBIN DECREASED [None]
  - HYPERHIDROSIS [None]
  - HYPERTENSIVE HEART DISEASE [None]
  - HYPOTENSION [None]
  - LOBAR PNEUMONIA [None]
  - MUSCULOSKELETAL CHEST PAIN [None]
  - MYOCARDIAL INFARCTION [None]
  - NEUTROPHIL COUNT DECREASED [None]
  - PERICARDIAL EFFUSION [None]
  - PLATELET COUNT DECREASED [None]
  - PNEUMONIA [None]
  - PULMONARY OEDEMA [None]
  - VENTRICULAR HYPERTROPHY [None]
